FAERS Safety Report 9770745 (Version 1)
Quarter: 2013Q4

REPORT INFORMATION
  Report Type: Spontaneous
  Country: US (occurrence: US)
  Receive Date: 20131218
  Receipt Date: 20131218
  Transmission Date: 20140711
  Serious: No
  Sender: FDA-Public Use
  Company Number: US-BAYER-2013-151732

PATIENT
  Age: 14 Year
  Sex: Female

DRUGS (3)
  1. ULTRAVIST INJECTION [Suspect]
     Indication: COMPUTERISED TOMOGRAM HEAD
     Dosage: 100 ML, ONCE
     Route: 042
     Dates: start: 20131104, end: 20131104
  2. ULTRAVIST INJECTION [Suspect]
     Indication: HEADACHE
  3. ULTRAVIST INJECTION [Suspect]
     Indication: CONTUSION

REACTIONS (4)
  - Pruritus [None]
  - Dyspnoea [None]
  - Asthma [None]
  - Sneezing [None]
